FAERS Safety Report 7034076-2 (Version None)
Quarter: 2010Q4

REPORT INFORMATION
  Report Type: 
  Country: None (occurrence: None)
  Receive Date: 20101006
  Receipt Date: 20100923
  Transmission Date: 20110411
  Serious: Yes (Hospitalization)
  Sender: FDA-Public Use
  Company Number: PE-001308

PATIENT
  Age: 13 Year
  Sex: Female

DRUGS (3)
  1. NAGLAZYME [Suspect]
     Indication: MUCOPOLYSACCHARIDOSIS VI
     Dosage: INTRAVENOUS DRIP
     Route: 041
     Dates: start: 20100827, end: 20100923
  2. CARDIOVASCULAR SYSTEM DRUGS [Concomitant]
  3. ANTIHISTAMINEA [Concomitant]

REACTIONS (8)
  - ABDOMINAL PAIN UPPER [None]
  - ACUTE PULMONARY OEDEMA [None]
  - DECREASED APPETITE [None]
  - GASTRITIS [None]
  - LISTLESS [None]
  - NAUSEA [None]
  - PALLOR [None]
  - RESPIRATORY RATE INCREASED [None]
